FAERS Safety Report 6260979-2 (Version None)
Quarter: 2009Q3

REPORT INFORMATION
  Report Type: 
  Country: None (occurrence: None)
  Receive Date: 20090707
  Receipt Date: 20090622
  Transmission Date: 20100115
  Serious: Yes (Hospitalization)
  Sender: FDA-Public Use
  Company Number: 2009AL001698

PATIENT
  Age: 83 Year
  Sex: Female
  Weight: 77.1115 kg

DRUGS (23)
  1. DIGOXIN [Suspect]
     Indication: CARDIAC DISORDER
     Dosage: 0.125MG, DAILY, PO
     Route: 048
  2. CLONIDINE [Concomitant]
  3. TORSEMIDE [Concomitant]
  4. CARVEDILOL [Concomitant]
  5. ALLOPURINOL [Concomitant]
  6. PROPOXYPHEN [Concomitant]
  7. HYDROCHLOROTHIAZIDE [Concomitant]
  8. FUROSEMIDE [Concomitant]
  9. JANTOVEN [Concomitant]
  10. AVAPRO [Concomitant]
  11. TOPROL-XL [Concomitant]
  12. ASPIRIN [Concomitant]
  13. PREDNISONE [Concomitant]
  14. NORVASC [Concomitant]
  15. METHOTREXATE [Concomitant]
  16. INDOCIN [Concomitant]
  17. DEMEDEX [Concomitant]
  18. COUMADIN [Concomitant]
  19. PREVACID [Concomitant]
  20. PREMARIN [Concomitant]
  21. PROMETHAZINE [Concomitant]
  22. AMOXICILLIN [Concomitant]
  23. VERAPAMIL [Concomitant]

REACTIONS (7)
  - ATRIAL FIBRILLATION [None]
  - CARDIAC FAILURE CONGESTIVE [None]
  - CEREBROVASCULAR ACCIDENT [None]
  - COUGH [None]
  - LOSS OF CONSCIOUSNESS [None]
  - OVERDOSE [None]
  - PALPITATIONS [None]
